FAERS Safety Report 24838553 (Version 3)
Quarter: 2025Q1

REPORT INFORMATION
  Report Type: Spontaneous
  Country: US (occurrence: US)
  Receive Date: 20250113
  Receipt Date: 20250313
  Transmission Date: 20250409
  Serious: Yes (Other)
  Sender: OTSUKA
  Company Number: US-OTSUKA-2025_000288

PATIENT
  Sex: Male
  Weight: 92.99 kg

DRUGS (4)
  1. NUEDEXTA [Suspect]
     Active Substance: DEXTROMETHORPHAN HYDROBROMIDE\QUINIDINE SULFATE
     Indication: Product used for unknown indication
     Dosage: 20/10MG, BID (TWICE A DAY)
     Route: 065
     Dates: start: 2024
  2. NUEDEXTA [Suspect]
     Active Substance: DEXTROMETHORPHAN HYDROBROMIDE\QUINIDINE SULFATE
     Route: 065
  3. WELLBUTRIN [Suspect]
     Active Substance: BUPROPION HYDROCHLORIDE
     Indication: Product used for unknown indication
     Dosage: 150 MG ONE IN THE AM AND PM (TWICE A DAY)
     Route: 065
  4. CARBIDOPA [Concomitant]
     Active Substance: CARBIDOPA
     Indication: Parkinson^s disease
     Route: 065

REACTIONS (5)
  - Suicidal ideation [Unknown]
  - Crying [Unknown]
  - Product packaging quantity issue [Unknown]
  - Therapy interrupted [Unknown]
  - Off label use [Unknown]
